FAERS Safety Report 5693738-X (Version None)
Quarter: 2008Q2

REPORT INFORMATION
  Report Type: 
  Country: None (occurrence: None)
  Receive Date: 20080403
  Receipt Date: 20080328
  Transmission Date: 20081010
  Serious: Yes (Other)
  Sender: FDA-Public Use
  Company Number: CA-ALLERGAN-0803418US

PATIENT
  Sex: Male
  Weight: 13.3 kg

DRUGS (7)
  1. BOTOX [Suspect]
     Indication: CEREBRAL PALSY
     Dosage: 300 UNITS, SINGLE
     Route: 030
     Dates: start: 20080213, end: 20080213
  2. BOTOX [Suspect]
     Indication: MUSCLE SPASTICITY
     Dosage: UNK, SINGLE
     Route: 030
     Dates: start: 20080213, end: 20080213
  3. BOTOX [Suspect]
     Dosage: 290 UNITS, SINGLE
     Route: 030
     Dates: start: 20071114, end: 20071114
  4. BOTOX [Suspect]
     Dosage: 290 UNITS, SINGLE
     Route: 030
     Dates: start: 20070711, end: 20070711
  5. BOTOX [Suspect]
     Dosage: 250 UNITS, SINGLE
     Route: 030
     Dates: start: 20070314, end: 20070314
  6. BOTOX [Suspect]
     Dosage: 200 UNITS, SINGLE
     Route: 030
     Dates: start: 20061122, end: 20061122
  7. BOTOX [Suspect]
     Dosage: UNK, SINGLE
     Route: 030
     Dates: start: 20060802, end: 20060802

REACTIONS (6)
  - ASTHENIA [None]
  - CHOKING [None]
  - DYSPHAGIA [None]
  - DYSPHONIA [None]
  - EYELID PTOSIS [None]
  - MUSCULAR WEAKNESS [None]
